FAERS Safety Report 4595067-4 (Version None)
Quarter: 2005Q1

REPORT INFORMATION
  Report Type: 
  Country: None (occurrence: None)
  Receive Date: 20050223
  Receipt Date: 20050208
  Transmission Date: 20050727
  Serious: Yes (Hospitalization)
  Sender: FDA-Public Use
  Company Number: WAES 0412USA03119

PATIENT
  Age: 10 Year
  Sex: Female

DRUGS (5)
  1. SINGULAIR [Suspect]
     Indication: ASTHMA
     Dosage: 5 MG/DAILY PO
     Route: 048
     Dates: start: 20030606, end: 20040502
  2. INTAL [Concomitant]
  3. THEO-DUR [Concomitant]
  4. ............... [Concomitant]
  5. MA HUANG EXTRACT [Concomitant]

REACTIONS (5)
  - ANOREXIA [None]
  - BLOOD IMMUNOGLOBULIN E INCREASED [None]
  - ERYTHEMA MULTIFORME [None]
  - LYMPHOCYTE STIMULATION TEST POSITIVE [None]
  - NEUTROPHIL PERCENTAGE DECREASED [None]
